FAERS Safety Report 8342708-1 (Version None)
Quarter: 2012Q2

REPORT INFORMATION
  Report Type: 
  Country: None (occurrence: None)
  Receive Date: 20120502
  Receipt Date: 20120424
  Transmission Date: 20120825
  Serious: Yes (Hospitalization)
  Sender: FDA-Public Use
  Company Number: 2011SP054119

PATIENT
  Age: 15 Year
  Sex: Female

DRUGS (4)
  1. DESLORATADINE [Suspect]
     Indication: ASTHMA
     Dosage: ;PO
     Route: 048
     Dates: end: 20111008
  2. GARDASIL (HUMAN PAPILLOMA VIRUS VACCINE) [Suspect]
     Dosage: 1 DF; ONCE; IM
     Dates: start: 20110830, end: 20110830
  3. VENTOLIN [Suspect]
     Indication: ASTHMA
     Dosage: ;INH
     Route: 055
     Dates: end: 20111008
  4. NEISVAC (MENINGOCOCCAL POLYSACCHARIDE) [Suspect]
     Dosage: 1 DF; ONE; IM
     Dates: start: 20111001, end: 20111001

REACTIONS (3)
  - ASCITES [None]
  - PANCREATITIS ACUTE [None]
  - MYCOPLASMA TEST POSITIVE [None]
